FAERS Safety Report 18727435 (Version 2)
Quarter: 2021Q1

REPORT INFORMATION
  Report Type: Spontaneous
  Country: US (occurrence: US)
  Receive Date: 20210111
  Receipt Date: 20210304
  Transmission Date: 20210419
  Serious: No
  Sender: FDA-Public Use
  Company Number: US-ASTRAZENECA-2021A004061

PATIENT
  Sex: Female

DRUGS (1)
  1. ZOMIG [Suspect]
     Active Substance: ZOLMITRIPTAN
     Route: 048

REACTIONS (1)
  - Migraine [Unknown]
